FAERS Safety Report 7581622-6 (Version None)
Quarter: 2011Q2

REPORT INFORMATION
  Report Type: 
  Country: None (occurrence: None)
  Receive Date: 20110629
  Receipt Date: 20080821
  Transmission Date: 20111010
  Serious: Yes (Other)
  Sender: FDA-Public Use
  Company Number: US-BAYER-200826017NA

PATIENT
  Sex: Male
  Weight: 42.3 kg

DRUGS (23)
  1. MAGNEVIST [Suspect]
  2. ENALAPRIL MALEATE [Concomitant]
  3. RIFAMPIN [Concomitant]
  4. MAGNEVIST [Suspect]
     Indication: NUCLEAR MAGNETIC RESONANCE IMAGING
     Dosage: UNK UNK, ONCE
     Dates: start: 20040430, end: 20040430
  5. MAGNEVIST [Suspect]
     Indication: NUCLEAR MAGNETIC RESONANCE IMAGING BRAIN
  6. CALCITRIOL [Concomitant]
  7. MULTIHANCE [Suspect]
     Indication: NUCLEAR MAGNETIC RESONANCE IMAGING
  8. EPOGEN [Concomitant]
  9. PHOSLO [Concomitant]
  10. AMLODIPINE [Concomitant]
  11. FEOSOL [Concomitant]
  12. NIFEDIPINE [Concomitant]
  13. PREDNISONE [Concomitant]
  14. NEURONTIN [Concomitant]
  15. OPTIMARK [Suspect]
     Indication: NUCLEAR MAGNETIC RESONANCE IMAGING
  16. FLUDROCORTISONE ACETATE [Concomitant]
  17. SIROLIMUS [Concomitant]
  18. PROHANCE [Suspect]
     Indication: NUCLEAR MAGNETIC RESONANCE IMAGING
  19. NEPHROVITE [VIT C,VIT H,B5,B12,B9,B3,B6,B2,B1 HCL] [Concomitant]
  20. OMNISCAN [Suspect]
     Indication: NUCLEAR MAGNETIC RESONANCE IMAGING
     Dosage: UNK
     Dates: start: 20041203, end: 20041203
  21. OMNISCAN [Suspect]
  22. MINOXIDIL [Concomitant]
  23. SODIUM BICARBONATE [Concomitant]

REACTIONS (19)
  - ANHEDONIA [None]
  - PRURITUS [None]
  - FIBROSIS [None]
  - GENERAL PHYSICAL HEALTH DETERIORATION [None]
  - JOINT STIFFNESS [None]
  - MUSCULOSKELETAL STIFFNESS [None]
  - PAIN [None]
  - OEDEMA PERIPHERAL [None]
  - SKIN FISSURES [None]
  - GAIT DISTURBANCE [None]
  - MOBILITY DECREASED [None]
  - INJURY [None]
  - EMOTIONAL DISTRESS [None]
  - SKIN TIGHTNESS [None]
  - NEPHROGENIC SYSTEMIC FIBROSIS [None]
  - JOINT CONTRACTURE [None]
  - SKIN BURNING SENSATION [None]
  - MENTAL DISORDER [None]
  - SKIN HYPERTROPHY [None]
